FAERS Safety Report 8062928-3 (Version None)
Quarter: 2012Q1

REPORT INFORMATION
  Report Type: 
  Country: None (occurrence: None)
  Receive Date: 20120123
  Receipt Date: 20120123
  Transmission Date: 20120608
  Serious: No
  Sender: FDA-Public Use
  Company Number: None

PATIENT
  Age: 25 Year
  Sex: Female
  Weight: 59.874 kg

DRUGS (1)
  1. MONISTAT [Suspect]
     Indication: FUNGAL INFECTION
     Dosage: 1 DOSE 1200MG
     Route: 067
     Dates: start: 20120116, end: 20120116

REACTIONS (7)
  - VULVOVAGINAL SWELLING [None]
  - FUNGAL INFECTION [None]
  - BURNING SENSATION [None]
  - RASH [None]
  - PRURITUS [None]
  - GAIT DISTURBANCE [None]
  - URTICARIA [None]
